FAERS Safety Report 25101427 (Version 1)
Quarter: 2025Q1

REPORT INFORMATION
  Report Type: Spontaneous
  Country: GB (occurrence: GB)
  Receive Date: 20250320
  Receipt Date: 20250320
  Transmission Date: 20250409
  Serious: Yes (Hospitalization)
  Sender: Steriscience PTE
  Company Number: None

PATIENT
  Age: 41 Year
  Sex: Female

DRUGS (2)
  1. MEROPENEM [Suspect]
     Active Substance: MEROPENEM
     Indication: Embolic cerebral infarction
     Dosage: 500 MILLIGRAM, Q6H
     Route: 042
  2. MEROPENEM [Suspect]
     Active Substance: MEROPENEM
     Indication: Encephalitis
     Dosage: 2 GRAM, Q8H
     Route: 042

REACTIONS (3)
  - Toxic encephalopathy [Unknown]
  - Acute kidney injury [Unknown]
  - Leukopenia [Unknown]
